FAERS Safety Report 9880432 (Version 1)
Quarter: 2014Q1

REPORT INFORMATION
  Report Type: Spontaneous
  Country: AU (occurrence: None)
  Receive Date: 20140204
  Receipt Date: 20140204
  Transmission Date: 20141002
  Serious: Yes (Death)
  Sender: FDA-Public Use
  Company Number: FK201400298

PATIENT
  Age: 53 Year
  Sex: Female

DRUGS (3)
  1. PROPOFOL (MANUFACTURER UNKNOWN) (PROPOFOL) (PROPOFOL) [Suspect]
     Indication: SEDATIVE THERAPY
     Dosage: MIN
  2. MIDAZOLAM [Concomitant]
  3. MORPHINE [Concomitant]

REACTIONS (6)
  - Metabolic acidosis [None]
  - Hyperkalaemia [None]
  - Cardiac arrest [None]
  - Pulseless electrical activity [None]
  - Hypotension [None]
  - Propofol infusion syndrome [None]
